FAERS Safety Report 5092854-3 (Version None)
Quarter: 2006Q3

REPORT INFORMATION
  Report Type: 
  Country: None (occurrence: None)
  Receive Date: 20060828
  Receipt Date: 20060816
  Transmission Date: 20061208
  Serious: Yes (Hospitalization)
  Sender: FDA-Public Use
  Company Number: 2006-BP-09646RO

PATIENT
  Age: 67 Year
  Sex: Female

DRUGS (9)
  1. CYCLOPHOSPHAMIDE [Suspect]
     Indication: BREAST CANCER
  2. CYCLOPHOSPHAMIDE [Suspect]
     Indication: CHEMOTHERAPY
  3. DEXAMETHASONE TAB [Suspect]
     Dosage: (20 MG), PO
     Route: 048
  4. DOXORUBICIN HCL [Suspect]
     Indication: BREAST CANCER
  5. DOXORUBICIN HCL [Suspect]
     Indication: CHEMOTHERAPY
  6. PACLITAXEL [Suspect]
     Indication: BREAST CANCER
  7. PACLITAXEL [Suspect]
     Indication: CHEMOTHERAPY
  8. NEULASTA [Suspect]
     Indication: BONE MARROW FAILURE
     Dosage: SEE IMAGE
     Route: 058
  9. NEULASTA [Suspect]
     Indication: INFECTION
     Dosage: SEE IMAGE
     Route: 058

REACTIONS (2)
  - DYSPNOEA [None]
  - LEUKOCYTOSIS [None]
